FAERS Safety Report 12536962 (Version 7)
Quarter: 2016Q3

REPORT INFORMATION
  Report Type: Spontaneous
  Country: HU (occurrence: HU)
  Receive Date: 20160707
  Receipt Date: 20160826
  Transmission Date: 20161109
  Serious: Yes (Death, Hospitalization, Other)
  Sender: FDA-Public Use
  Company Number: HU-ELI_LILLY_AND_COMPANY-HU201606011133

PATIENT
  Age: 58 Year
  Sex: Male

DRUGS (9)
  1. OLANZAPINE. [Suspect]
     Active Substance: OLANZAPINE
     Dosage: 20 MG, QD
     Route: 048
     Dates: start: 201606, end: 20160620
  2. DICLAC                             /00372302/ [Concomitant]
     Active Substance: DICLOFENAC POTASSIUM
     Indication: PRODUCT USED FOR UNKNOWN INDICATION
     Dosage: UNK, UNKNOWN
     Route: 048
  3. OLANZAPINE. [Suspect]
     Active Substance: OLANZAPINE
     Indication: SCHIZOPHRENIA
     Dosage: 7.5 MG, QD
     Route: 048
     Dates: start: 20160525
  4. OLANZAPINE. [Suspect]
     Active Substance: OLANZAPINE
     Dosage: UNK, UNKNOWN
     Route: 048
     Dates: start: 20160621
  5. ZYPADHERA [Suspect]
     Active Substance: OLANZAPINE PAMOATE
     Indication: ACUTE PSYCHOSIS
  6. PAROXETINE. [Concomitant]
     Active Substance: PAROXETINE
     Indication: PRODUCT USED FOR UNKNOWN INDICATION
     Dosage: 20 MG, QD
     Route: 048
  7. OLANZAPINE. [Suspect]
     Active Substance: OLANZAPINE
     Indication: ACUTE PSYCHOSIS
     Dosage: UNK, QD
     Route: 048
     Dates: start: 20160531, end: 201606
  8. ZYPADHERA [Suspect]
     Active Substance: OLANZAPINE PAMOATE
     Indication: SCHIZOPHRENIA
     Dosage: 405 MG, UNKNOWN
     Route: 030
     Dates: start: 20160621
  9. CONTROLOC                          /01263201/ [Concomitant]
     Indication: PRODUCT USED FOR UNKNOWN INDICATION
     Dosage: 40 MG, QD
     Route: 048

REACTIONS (15)
  - Intestinal perforation [Fatal]
  - Abdominal pain [Recovered/Resolved]
  - Anaemia [Unknown]
  - Intestinal obstruction [Fatal]
  - Pneumonia [Unknown]
  - Hyponatraemia [Unknown]
  - Agranulocytosis [Unknown]
  - Arteriosclerosis [Unknown]
  - Mesenteric vascular occlusion [Fatal]
  - Cardiac failure [Fatal]
  - Gastrointestinal necrosis [Fatal]
  - Respiratory rate decreased [Unknown]
  - Asthenia [Unknown]
  - Sepsis [Fatal]
  - Peritonitis [Fatal]

NARRATIVE: CASE EVENT DATE: 201606
